FAERS Safety Report 13109530 (Version 8)
Quarter: 2018Q1

REPORT INFORMATION
  Report Type: Spontaneous
  Country: US (occurrence: US)
  Receive Date: 20170112
  Receipt Date: 20180315
  Transmission Date: 20180508
  Serious: Yes (Death, Hospitalization, Other)
  Sender: FDA-Public Use
  Company Number: US-SA-2017SA004273

PATIENT
  Age: 59 Year
  Sex: Male
  Weight: 77.1 kg

DRUGS (2)
  1. FABRAZYME [Suspect]
     Active Substance: AGALSIDASE BETA
     Indication: FABRY^S DISEASE
     Route: 041
     Dates: start: 2017, end: 20180303
  2. FABRAZYME [Suspect]
     Active Substance: AGALSIDASE BETA
     Indication: FABRY^S DISEASE
     Route: 041
     Dates: start: 20110217

REACTIONS (9)
  - Renal failure [Unknown]
  - Malaise [Unknown]
  - Death [Fatal]
  - Intestinal perforation [Unknown]
  - Weight decreased [Unknown]
  - Confusional state [Unknown]
  - Hospitalisation [Unknown]
  - Wound secretion [Unknown]
  - Wound [Unknown]

NARRATIVE: CASE EVENT DATE: 20170103
